FAERS Safety Report 7267863-6 (Version None)
Quarter: 2011Q1

REPORT INFORMATION
  Report Type: 
  Country: None (occurrence: None)
  Receive Date: 20110201
  Receipt Date: 20110124
  Transmission Date: 20110831
  Serious: Yes (Death, Hospitalization)
  Sender: FDA-Public Use
  Company Number: US-CELGENEUS-163-21880-10112647

PATIENT
  Sex: Female
  Weight: 65.603 kg

DRUGS (17)
  1. FOLIC ACID [Concomitant]
     Route: 065
  2. VITAMIN E [Concomitant]
     Route: 065
  3. ALLOPURINOL [Concomitant]
     Indication: PROPHYLAXIS
     Route: 065
     Dates: start: 20101101
  4. SYNTHROID [Concomitant]
     Indication: HYPOTHYROIDISM
     Route: 065
  5. IMMUNE GLOBULIN INTRAVENOUS (HUMAN) [Concomitant]
     Route: 065
  6. ASCORBIC ACID [Concomitant]
     Route: 065
  7. ALLOPURINOL [Concomitant]
     Route: 065
  8. PREDNISONE [Concomitant]
     Indication: AUTOIMMUNE DISORDER
     Route: 048
  9. VITAMIN B COMPLEX CAP [Concomitant]
     Route: 065
  10. CALCIUM [Concomitant]
     Route: 065
  11. REVLIMID [Suspect]
     Route: 048
     Dates: start: 20101105, end: 20101108
  12. HYDROCHLOROTHIAZIDE [Concomitant]
     Dosage: 25
     Route: 065
  13. VITAMIN D [Concomitant]
     Route: 065
  14. MULTI-VITAMINS [Concomitant]
     Route: 065
  15. ASA [Concomitant]
     Indication: PROPHYLAXIS
     Route: 065
  16. URSODIOL [Concomitant]
     Route: 065
  17. VERAPAMIL [Concomitant]
     Route: 065

REACTIONS (3)
  - PNEUMONIA [None]
  - CHRONIC LYMPHOCYTIC LEUKAEMIA [None]
  - HYPONATRAEMIA [None]
